FAERS Safety Report 5102967-5 (Version None)
Quarter: 2006Q3

REPORT INFORMATION
  Report Type: 
  Country: None (occurrence: None)
  Receive Date: 20060907
  Receipt Date: 20060821
  Transmission Date: 20061208
  Serious: Yes (Hospitalization)
  Sender: FDA-Public Use
  Company Number: FR200606003508

PATIENT
  Age: 77 Year
  Sex: Female
  Weight: 39 kg

DRUGS (4)
  1. FORTEO [Suspect]
     Indication: OSTEOPOROSIS
     Dosage: 20 UG, DAILY (1/D), SUBCUTANEOUS
     Route: 058
     Dates: start: 20060513, end: 20060527
  2. FORTEO PEN (FORTEO PEN) [Concomitant]
  3. CACIT (CALCIUM CARBONATE, CITRIC ACID) [Concomitant]
  4. FENOFIBRATE [Concomitant]

REACTIONS (7)
  - ASTHENIA [None]
  - BALANCE DISORDER [None]
  - CONFUSIONAL STATE [None]
  - GENERAL PHYSICAL HEALTH DETERIORATION [None]
  - HYPERCALCAEMIA [None]
  - NERVOUS SYSTEM DISORDER [None]
  - PROSTRATION [None]
